FAERS Safety Report 20339111 (Version 1)
Quarter: 2022Q1

REPORT INFORMATION
  Report Type: Report from Study
  Country: CA (occurrence: CA)
  Receive Date: 20220117
  Receipt Date: 20220117
  Transmission Date: 20220424
  Serious: Yes (Other)
  Sender: FDA-Public Use
  Company Number: CA-ABBVIE-22K-028-4232227-00

PATIENT
  Sex: Female

DRUGS (1)
  1. RINVOQ [Suspect]
     Active Substance: UPADACITINIB
     Indication: Rheumatoid arthritis
     Route: 048
     Dates: start: 20210224, end: 20211213

REACTIONS (8)
  - Breast cancer female [Unknown]
  - Influenza [Unknown]
  - Chills [Unknown]
  - Abdominal pain [Unknown]
  - Malaise [Unknown]
  - Peripheral swelling [Unknown]
  - Sinusitis [Unknown]
  - Cough [Unknown]
